FAERS Safety Report 4403866-4 (Version None)
Quarter: 2004Q3

REPORT INFORMATION
  Report Type: 
  Country: None (occurrence: None)
  Receive Date: 20040719
  Receipt Date: 20040705
  Transmission Date: 20050211
  Serious: Yes (Hospitalization)
  Sender: FDA-Public Use
  Company Number: K200400976

PATIENT
  Age: 60 Year
  Sex: Male

DRUGS (6)
  1. ALTACE [Suspect]
     Indication: CARDIOMYOPATHY
     Dosage: 5 MG, QD, ORAL
     Route: 048
  2. DIGOXINE (DIGOXIN) 1U [Suspect]
     Indication: ATRIAL FIBRILLATION
     Dosage: 1 U, QD, ORAL
     Route: 048
     Dates: end: 20040525
  3. DAONIL (GLIBENCLAMIDE) TABLET [Concomitant]
  4. PREVISCAN (FLUINDIONE) TABLET [Concomitant]
  5. CARDENSIEL (BISOPROLOL FUMARATE) TABLET [Concomitant]
  6. FUROSEMIDE [Concomitant]

REACTIONS (10)
  - ANOREXIA [None]
  - ATRIOVENTRICULAR BLOCK COMPLETE [None]
  - BLOOD GLUCOSE INCREASED [None]
  - BLOOD UREA INCREASED [None]
  - DIARRHOEA [None]
  - GAMMA-GLUTAMYLTRANSFERASE INCREASED [None]
  - HEART RATE DECREASED [None]
  - NAUSEA [None]
  - RESPIRATORY FAILURE [None]
  - VOMITING [None]
